FAERS Safety Report 4494430-X (Version None)
Quarter: 2004Q4

REPORT INFORMATION
  Report Type: 
  Country: None (occurrence: None)
  Receive Date: 20041102
  Receipt Date: 20041019
  Transmission Date: 20050328
  Serious: Yes (Death, Hospitalization)
  Sender: FDA-Public Use
  Company Number: DE_040914338

PATIENT
  Age: 62 Year
  Sex: Female

DRUGS (4)
  1. PERGOLIDE MESYLATE [Suspect]
     Indication: PARKINSON'S DISEASE
     Dosage: 6 MG DAY
     Dates: start: 19950928
  2. LEVODOPA [Concomitant]
  3. AMANTADINE HCL [Concomitant]
  4. COMTESS (ENTACAPONE) [Concomitant]

REACTIONS (5)
  - ANGINA PECTORIS [None]
  - BLOOD ELECTROLYTES DECREASED [None]
  - CARDIAC FAILURE ACUTE [None]
  - MITRAL VALVE INCOMPETENCE [None]
  - TRICUSPID VALVE INCOMPETENCE [None]
